FAERS Safety Report 6072054-0 (Version None)
Quarter: 2009Q1

REPORT INFORMATION
  Report Type: 
  Country: None (occurrence: None)
  Receive Date: 20090210
  Receipt Date: 20090130
  Transmission Date: 20090719
  Serious: Yes (Other)
  Sender: FDA-Public Use
  Company Number: US-WYE-H08009209

PATIENT
  Age: 13 Year
  Sex: Male
  Weight: 49.94 kg

DRUGS (2)
  1. ROBITUSSIN COUGH AND CHEST CONGESTION DM MAX [Suspect]
     Indication: COUGH
     Dosage: 2 TEASPOONS X 1
     Route: 048
     Dates: start: 20081101, end: 20081101
  2. ROBITUSSIN COUGH AND CHEST CONGESTION DM MAX [Suspect]
     Indication: UPPER RESPIRATORY TRACT CONGESTION
     Dosage: UNKNOWN DOSE X 1
     Route: 048
     Dates: start: 20090129, end: 20090129

REACTIONS (3)
  - DYSPNOEA [None]
  - HYPERSENSITIVITY [None]
  - URTICARIA [None]
